FAERS Safety Report 23077266 (Version 1)
Quarter: 2023Q4

REPORT INFORMATION
  Report Type: Spontaneous
  Country: FR (occurrence: None)
  Receive Date: 20231018
  Receipt Date: 20231018
  Transmission Date: 20240110
  Serious: Yes (Hospitalization)
  Sender: FDA-Public Use
  Company Number: FR-Orion Corporation ORION PHARMA-TREX2023-0237

PATIENT
  Age: 58 Year
  Sex: Female
  Weight: 73 kg

DRUGS (8)
  1. METHOTREXATE [Suspect]
     Active Substance: METHOTREXATE
     Indication: Sarcoidosis
     Dates: start: 20230415, end: 20230718
  2. PREDNISONE [Concomitant]
     Active Substance: PREDNISONE
  3. VALACYCLOVIR HYDROCHLORIDE [Concomitant]
     Active Substance: VALACYCLOVIR HYDROCHLORIDE
  4. LANSOPRAZOLE [Concomitant]
     Active Substance: LANSOPRAZOLE
  5. BACTRIM [Concomitant]
     Active Substance: SULFAMETHOXAZOLE\TRIMETHOPRIM
  6. FUROSEMIDE [Concomitant]
     Active Substance: FUROSEMIDE
  7. FOLIC ACID [Concomitant]
     Active Substance: FOLIC ACID
  8. FLECAINIDE [Concomitant]
     Active Substance: FLECAINIDE
     Dosage: STRENGTH: 100 MG

REACTIONS (2)
  - Posterior reversible encephalopathy syndrome [Recovered/Resolved]
  - Product use in unapproved indication [Unknown]

NARRATIVE: CASE EVENT DATE: 20230718
